FAERS Safety Report 6724841-0 (Version None)
Quarter: 2010Q2

REPORT INFORMATION
  Report Type: 
  Country: None (occurrence: None)
  Receive Date: 20100513
  Receipt Date: 20100513
  Transmission Date: 20101027
  Serious: Yes (Life-Threatening)
  Sender: FDA-Public Use
  Company Number: None

PATIENT
  Age: 53 Year
  Sex: Female
  Weight: 63.5036 kg

DRUGS (2)
  1. LYRICA [Suspect]
     Indication: BREAST PAIN
     Dosage: 75MG QDX 1 WEEK PO
     Route: 048
     Dates: start: 20090210, end: 20090217
  2. LYRICA [Suspect]
     Indication: BREAST PAIN
     Dosage: 25 MG QD PO
     Route: 048
     Dates: start: 20090220, end: 20090220

REACTIONS (3)
  - ABDOMINAL DISTENSION [None]
  - CARDIAC FAILURE CONGESTIVE [None]
  - OEDEMA PERIPHERAL [None]
